FAERS Safety Report 11198798 (Version 1)
Quarter: 2015Q2

REPORT INFORMATION
  Report Type: Spontaneous
  Country: US (occurrence: US)
  Receive Date: 20150618
  Receipt Date: 20150618
  Transmission Date: 20150821
  Serious: No
  Sender: FDA-Public Use
  Company Number: US-009507513-1506USA001841

PATIENT
  Age: 27 Year
  Sex: Female
  Weight: 118.37 kg

DRUGS (1)
  1. NEXPLANON [Suspect]
     Active Substance: ETONOGESTREL
     Indication: CONTRACEPTION
     Dosage: SINGLE ROD
     Route: 059
     Dates: start: 20140721

REACTIONS (2)
  - Device expulsion [Not Recovered/Not Resolved]
  - Implant site infection [Unknown]

NARRATIVE: CASE EVENT DATE: 20140728
